FAERS Safety Report 4526631-6 (Version None)
Quarter: 2004Q4

REPORT INFORMATION
  Report Type: 
  Country: None (occurrence: None)
  Receive Date: 20041213
  Receipt Date: 20041103
  Transmission Date: 20050328
  Serious: Yes (Life-Threatening, Hospitalization, Disabling, Other)
  Sender: FDA-Public Use
  Company Number: US_991232959

PATIENT
  Age: 47 Year
  Sex: Male
  Weight: 114 kg

DRUGS (35)
  1. ZYPREXA [Suspect]
     Indication: BIPOLAR DISORDER
     Dosage: 15 MG/1 DAY
     Dates: start: 19981208, end: 19991213
  2. ZYPREXA [Suspect]
     Indication: PSYCHOTIC DISORDER
     Dosage: 15 MG/1 DAY
     Dates: start: 19981208, end: 19991213
  3. LITHIUM [Concomitant]
  4. VALPROIC ACID [Concomitant]
  5. VASOTEC [Concomitant]
  6. NIASPAN [Concomitant]
  7. INDOCIN [Concomitant]
  8. PROZAC [Concomitant]
  9. PROLIXIN [Concomitant]
  10. CLARITIN [Concomitant]
  11. KLONOPIN [Concomitant]
  12. RISPERIDONE [Concomitant]
  13. HALDOL (HALOPERIDOL DECONATE) [Concomitant]
  14. STELAZINE [Concomitant]
  15. DEPAKOTE [Concomitant]
  16. CELEXA [Concomitant]
  17. PAXIL [Concomitant]
  18. INSULIN [Concomitant]
  19. ACTOS [Concomitant]
  20. INDERAL [Concomitant]
  21. TRIMACINOLONE [Concomitant]
  22. PRILOSEC (OMEPRAZOLE RATIOPHARM) [Concomitant]
  23. ATIVAN [Concomitant]
  24. DOCUSATE [Concomitant]
  25. FERROUS SULFATE TAB [Concomitant]
  26. NEURONTIN (GABAPENTIN PFIZER) [Concomitant]
  27. VITAMIN C [Concomitant]
  28. NPH INSULIN [Concomitant]
  29. ABILIFY [Concomitant]
  30. FLOMAX [Concomitant]
  31. PREVACID [Concomitant]
  32. DDAVP (DESMOPRESSIN ACETATE) [Concomitant]
  33. GLUCOTROL [Concomitant]
  34. CARDURA [Concomitant]
  35. ARTANE [Concomitant]

REACTIONS (41)
  - AORTIC THROMBOSIS [None]
  - BIPOLAR DISORDER [None]
  - BLOOD CREATINE PHOSPHOKINASE INCREASED [None]
  - CELLULITIS [None]
  - COMA [None]
  - DEHYDRATION [None]
  - DIABETIC COMA [None]
  - DIABETIC HYPEROSMOLAR COMA [None]
  - DIABETIC KETOACIDOSIS [None]
  - ERYTHEMA [None]
  - GANGRENE [None]
  - GLYCOSURIA [None]
  - HYPERCOAGULATION [None]
  - HYPERGLYCAEMIA [None]
  - HYPERTENSION [None]
  - HYPOGLYCAEMIA [None]
  - IMPAIRED HEALING [None]
  - INSULIN RESISTANCE [None]
  - ISCHAEMIA [None]
  - KIDNEY MALFORMATION [None]
  - LEG AMPUTATION [None]
  - LEUKOCYTOSIS [None]
  - METABOLIC ACIDOSIS [None]
  - NECROSIS [None]
  - NEPHROGENIC DIABETES INSIPIDUS [None]
  - NEUROLEPTIC MALIGNANT SYNDROME [None]
  - NEUROPATHIC PAIN [None]
  - OSTEOMYELITIS CHRONIC [None]
  - PERIPHERAL EMBOLISM [None]
  - PERIPHERAL VASCULAR DISORDER [None]
  - POLYDIPSIA [None]
  - POLYURIA [None]
  - TACHYCARDIA [None]
  - TACHYPNOEA [None]
  - THERAPEUTIC AGENT TOXICITY [None]
  - ULCER [None]
  - VISION BLURRED [None]
  - VOMITING [None]
  - WEIGHT DECREASED [None]
  - WEIGHT INCREASED [None]
  - WOUND INFECTION [None]
